FAERS Safety Report 7541041-5 (Version None)
Quarter: 2011Q2

REPORT INFORMATION
  Report Type: 
  Country: None (occurrence: None)
  Receive Date: 20110610
  Receipt Date: 20101103
  Transmission Date: 20111010
  Serious: No
  Sender: FDA-Public Use
  Company Number: A0890561A

PATIENT
  Age: 82 Year
  Sex: Female

DRUGS (10)
  1. DIAVAN [Concomitant]
  2. LIPITOR [Concomitant]
  3. PROTONIX [Concomitant]
  4. ATENOLOL [Concomitant]
  5. PLAVIX [Concomitant]
  6. METFORMIN HCL [Concomitant]
  7. SYNTHROID [Concomitant]
  8. ALTABAX [Suspect]
     Indication: WOUND
     Dosage: 1APP SINGLE DOSE
     Route: 061
     Dates: start: 20101015, end: 20101015
  9. LOZOL [Concomitant]
  10. ASPIRIN [Concomitant]

REACTIONS (3)
  - APPLICATION SITE BURN [None]
  - APPLICATION SITE PAIN [None]
  - WOUND COMPLICATION [None]
